FAERS Safety Report 8675341 (Version 2)
Quarter: 2013Q1

REPORT INFORMATION
  Report Type: Spontaneous
  Country: US (occurrence: US)
  Receive Date: 20120720
  Receipt Date: 20130315
  Transmission Date: 20140127
  Serious: No
  Sender: FDA-Public Use
  Company Number: US-PFIZER INC-2012171378

PATIENT
  Age: 6 Year
  Sex: Female
  Weight: 17 kg

DRUGS (1)
  1. ARGININE [Suspect]
     Indication: BLOOD GROWTH HORMONE ABNORMAL
     Dosage: 0.5 MG/KG, SINGLE
     Route: 042
     Dates: start: 20120713

REACTIONS (3)
  - Nausea [Recovered/Resolved]
  - Vomiting [Recovered/Resolved]
  - Diarrhoea [Recovered/Resolved]
